FAERS Safety Report 9525468 (Version 2)
Quarter: 2013Q4

REPORT INFORMATION
  Report Type: Spontaneous
  Country: US (occurrence: None)
  Receive Date: 20130314
  Receipt Date: 20131216
  Transmission Date: 20140711
  Serious: No
  Sender: FDA-Public Use
  Company Number: E7389-03461-SPO-US

PATIENT
  Age: 71 Year
  Sex: Female

DRUGS (1)
  1. HALAVEN [Suspect]
     Dosage: UNKNOWN, UNKNOWN, INTRAVENOUS INFUSION? ? ? ? ? ? ? ? ? ?

REACTIONS (11)
  - Chest pain [None]
  - Oral dysaesthesia [None]
  - Fluid retention [None]
  - Weight increased [None]
  - Fatigue [None]
  - Dysgeusia [None]
  - Decreased appetite [None]
  - Neuropathy peripheral [None]
  - Asthenia [None]
  - Back pain [None]
  - Alopecia [None]
